FAERS Safety Report 8828073 (Version 2)
Quarter: 2012Q4

REPORT INFORMATION
  Report Type: 
  Country: IN (occurrence: IN)
  Receive Date: 20121005
  Receipt Date: 20121012
  Transmission Date: 20130627
  Serious: Yes (Other)
  Sender: FDA-Public Use
  Company Number: IN-RANBAXY-2012RR-60749

PATIENT
  Age: 50 Year
  Sex: Female

DRUGS (5)
  1. GLICLAZIDE [Suspect]
     Indication: TYPE 2 DIABETES MELLITUS
     Dosage: 160 mg, daily
     Route: 065
  2. METFORMIN HYDROCHLORIDE [Suspect]
     Indication: TYPE 2 DIABETES MELLITUS
     Dosage: UNK
     Route: 065
  3. PIOGLITAZONE [Suspect]
     Indication: TYPE 2 DIABETES MELLITUS
     Dosage: 15 mg, daily
     Route: 065
  4. PIOGLITAZONE [Suspect]
     Indication: TYPE 2 DIABETES MELLITUS
     Dosage: 30 mg, dailly
     Route: 065
  5. SITAGLIPIN [Concomitant]
     Indication: TYPE 2 DIABETES MELLITUS
     Dosage: 100 mg, UNK
     Route: 065

REACTIONS (4)
  - Mitral valve incompetence [Recovered/Resolved]
  - Aortic valve incompetence [Recovered/Resolved]
  - Fluid retention [Unknown]
  - Drug interaction [Unknown]
